FAERS Safety Report 5237784-9 (Version None)
Quarter: 2007Q1

REPORT INFORMATION
  Report Type: 
  Country: None (occurrence: None)
  Receive Date: 20070214
  Receipt Date: 20070213
  Transmission Date: 20070707
  Serious: Yes (Other)
  Sender: FDA-Public Use
  Company Number: 200710639EU

PATIENT
  Age: 43 Year
  Sex: Female

DRUGS (2)
  1. NICODERM [Suspect]
     Indication: SMOKING CESSATION THERAPY
     Dosage: 7MG PER DAY
     Route: 062
     Dates: start: 20061107
  2. DEPO-PROVERA [Concomitant]
     Indication: CONTRACEPTION
     Route: 065
     Dates: start: 20050101

REACTIONS (2)
  - DEPENDENCE [None]
  - INSOMNIA [None]
